FAERS Safety Report 9363166 (Version 1)
Quarter: 2013Q2

REPORT INFORMATION
  Report Type: Report from Study
  Country: CA (occurrence: CA)
  Receive Date: 20130624
  Receipt Date: 20130624
  Transmission Date: 20140414
  Serious: Yes (Hospitalization, Other)
  Sender: FDA-Public Use
  Company Number: CA-ROCHE-1240077

PATIENT
  Sex: Female
  Weight: 118 kg

DRUGS (10)
  1. ACTEMRA [Suspect]
     Indication: RHEUMATOID ARTHRITIS
     Route: 042
     Dates: start: 20130108, end: 20130527
  2. ACTEMRA [Suspect]
     Route: 042
     Dates: end: 20130205
  3. ACTEMRA [Suspect]
     Route: 042
     Dates: end: 20130305
  4. ARAVA [Concomitant]
  5. PLAQUENIL [Concomitant]
  6. CITALOPRAM [Concomitant]
  7. PREDNISONE [Concomitant]
  8. DEXILANT [Concomitant]
  9. SYNTHROID [Concomitant]
  10. TYLENOL [Concomitant]

REACTIONS (2)
  - Vestibular neuronitis [Unknown]
  - Gastric disorder [Unknown]
